FAERS Safety Report 9255841 (Version 1)
Quarter: 2013Q2

REPORT INFORMATION
  Report Type: Spontaneous
  Country: ES (occurrence: ES)
  Receive Date: 20130425
  Receipt Date: 20130425
  Transmission Date: 20140414
  Serious: Yes (Other)
  Sender: FDA-Public Use
  Company Number: ES-ABBOTT-13X-144-1081216-00

PATIENT
  Age: 33 Year
  Sex: Male

DRUGS (8)
  1. DEPAKINE [Suspect]
     Indication: PARANOID PERSONALITY DISORDER
     Dosage: DURATION: FEW MONTHS
     Route: 048
     Dates: start: 201210, end: 20130409
  2. SOLIAN [Suspect]
     Indication: PARANOID PERSONALITY DISORDER
     Route: 048
     Dates: start: 2010, end: 201208
  3. SOLIAN [Suspect]
     Route: 048
     Dates: start: 201208, end: 20130409
  4. SINOGAN [Suspect]
     Indication: PARANOID PERSONALITY DISORDER
     Dosage: DURATION: FEW DAYS
     Route: 048
     Dates: start: 201302, end: 20130409
  5. HALOPERIDOL [Suspect]
     Indication: PARANOID PERSONALITY DISORDER
     Dosage: DURATION: FEW DAYS
     Route: 048
     Dates: start: 201302, end: 20130409
  6. RIVOTRIL [Concomitant]
     Indication: PRODUCT USED FOR UNKNOWN INDICATION
     Dates: start: 201302, end: 20130409
  7. LOSARTAN [Concomitant]
     Indication: PRODUCT USED FOR UNKNOWN INDICATION
     Dates: start: 2010
  8. ACETYLSALICYLIC ACID [Concomitant]
     Indication: PRODUCT USED FOR UNKNOWN INDICATION
     Dates: start: 2011

REACTIONS (4)
  - Convulsion [Unknown]
  - Loss of consciousness [Unknown]
  - Urinary incontinence [Unknown]
  - Vertigo [Recovered/Resolved]
